FAERS Safety Report 8125336-2 (Version None)
Quarter: 2012Q1

REPORT INFORMATION
  Report Type: 
  Country: None (occurrence: None)
  Receive Date: 20120209
  Receipt Date: 20120206
  Transmission Date: 20120608
  Serious: Yes (Congenital Anomaly)
  Sender: FDA-Public Use
  Company Number: US-GLAXOSMITHKLINE-A0963955A

PATIENT
  Sex: Female

DRUGS (3)
  1. PAXIL [Suspect]
     Indication: AFFECTIVE DISORDER
     Route: 064
  2. LEVAQUIN [Concomitant]
     Indication: BRONCHITIS
     Route: 064
  3. KLONOPIN [Concomitant]
     Indication: AFFECTIVE DISORDER
     Route: 064

REACTIONS (4)
  - ARNOLD-CHIARI MALFORMATION [None]
  - FOETAL EXPOSURE DURING PREGNANCY [None]
  - HYDROCEPHALUS [None]
  - SPINA BIFIDA [None]
